FAERS Safety Report 21439588 (Version 1)
Quarter: 2022Q4

REPORT INFORMATION
  Report Type: Spontaneous
  Country: CN (occurrence: CN)
  Receive Date: 20221011
  Receipt Date: 20221011
  Transmission Date: 20230113
  Serious: Yes (Life-Threatening, Hospitalization)
  Sender: FDA-Public Use
  Company Number: CN-BAYER-2022A139543

PATIENT
  Age: 59 Year
  Sex: Male
  Weight: 59 kg

DRUGS (8)
  1. GLUCOBAY [Interacting]
     Active Substance: ACARBOSE
     Indication: Diabetic complication renal
     Dosage: 0.1 G, TID, DURING MEALS
     Route: 048
     Dates: start: 20220905, end: 20220907
  2. GLUCOBAY [Interacting]
     Active Substance: ACARBOSE
     Indication: Diabetes mellitus
  3. TOUJEO [Interacting]
     Active Substance: INSULIN GLARGINE
     Indication: Diabetic complication renal
     Dosage: 18 U, QD, BEFORE MEAL
     Route: 058
     Dates: start: 20220904, end: 20220904
  4. TOUJEO [Interacting]
     Active Substance: INSULIN GLARGINE
     Indication: Diabetes mellitus
     Dosage: 24 U, QD, BEFORE MEAL
     Route: 058
     Dates: start: 20220905, end: 20220909
  5. GLUCOPHAGE [Interacting]
     Active Substance: METFORMIN HYDROCHLORIDE
     Indication: Diabetic complication renal
     Dosage: 500 MG, BID, DURING MEALS
     Route: 048
     Dates: start: 20220904, end: 20220909
  6. GLUCOPHAGE [Interacting]
     Active Substance: METFORMIN HYDROCHLORIDE
     Indication: Diabetes mellitus
  7. JANUVIA [Interacting]
     Active Substance: SITAGLIPTIN PHOSPHATE
     Indication: Diabetic complication renal
     Dosage: 100 MG, QD, BEFORE LUNCH
     Route: 048
     Dates: start: 20220905, end: 20220909
  8. JANUVIA [Interacting]
     Active Substance: SITAGLIPTIN PHOSPHATE
     Indication: Diabetes mellitus

REACTIONS (4)
  - Hypoglycaemia [Recovering/Resolving]
  - Palpitations [Recovering/Resolving]
  - Tremor [Recovering/Resolving]
  - Hyperhidrosis [Recovering/Resolving]

NARRATIVE: CASE EVENT DATE: 20220905
